FAERS Safety Report 13651036 (Version 13)
Quarter: 2023Q2

REPORT INFORMATION
  Report Type: Spontaneous
  Country: BR (occurrence: BR)
  Receive Date: 20170614
  Receipt Date: 20230612
  Transmission Date: 20230722
  Serious: Yes (Other)
  Sender: FDA-Public Use
  Company Number: BR-GLAXOSMITHKLINE-BR2016GSK144065

PATIENT

DRUGS (6)
  1. BENLYSTA [Suspect]
     Active Substance: BELIMUMAB
     Indication: Systemic lupus erythematosus
     Dosage: 640 MG
     Route: 042
     Dates: start: 20160902
  2. BENLYSTA [Suspect]
     Active Substance: BELIMUMAB
     Dosage: UNK
     Dates: start: 20170607
  3. BENLYSTA [Suspect]
     Active Substance: BELIMUMAB
     Dosage: UNK
     Dates: start: 20170831
  4. BENLYSTA [Suspect]
     Active Substance: BELIMUMAB
     Dosage: UNK
     Dates: start: 20171027
  5. BENLYSTA [Suspect]
     Active Substance: BELIMUMAB
     Dosage: UNK
     Dates: start: 20180118
  6. BENLYSTA [Suspect]
     Active Substance: BELIMUMAB
     Dosage: 1X400MG+3X120MG

REACTIONS (17)
  - Thoracic vertebral fracture [Unknown]
  - Keratoconus [Unknown]
  - Arthralgia [Recovered/Resolved]
  - Dyspnoea [Recovered/Resolved]
  - Stomatitis [Recovered/Resolved]
  - Hypertension [Unknown]
  - Osteoporosis [Unknown]
  - Thyroid mass [Unknown]
  - Pain [Recovered/Resolved]
  - Back pain [Unknown]
  - Memory impairment [Not Recovered/Not Resolved]
  - Underdose [Unknown]
  - Circumstance or information capable of leading to medication error [Unknown]
  - Inappropriate schedule of product administration [Unknown]
  - Product supply issue [Unknown]
  - Product dose omission issue [Unknown]
  - Product use issue [Unknown]
